FAERS Safety Report 12059784 (Version 19)
Quarter: 2020Q2

REPORT INFORMATION
  Report Type: Report from Study
  Country: FR (occurrence: FR)
  Receive Date: 20160210
  Receipt Date: 20200522
  Transmission Date: 20200713
  Serious: Yes (Life-Threatening, Hospitalization, Other)
  Sender: FDA-Public Use
  Company Number: FR-PFIZER INC-2016058593

PATIENT
  Age: 62 Year
  Sex: Male
  Weight: 112 kg

DRUGS (10)
  1. BISOPROLOL FUMARATE. [Suspect]
     Active Substance: BISOPROLOL FUMARATE
     Indication: POISONING
     Dosage: 520 MILLIGRAM, TOTAL
     Route: 048
     Dates: start: 20151222, end: 20151222
  2. CLOMIPRAMINE HCL [Suspect]
     Active Substance: CLOMIPRAMINE
     Indication: POISONING
     Dosage: 600 MG (24 TABLETS OF 25 MG)
     Route: 048
     Dates: start: 20151222, end: 20151222
  3. HYDROCHLOROTHIAZIDE. [Concomitant]
     Active Substance: HYDROCHLOROTHIAZIDE
     Dosage: 750 MG, SINGLE
  4. APIXABAN [Suspect]
     Active Substance: APIXABAN
     Indication: ANTICOAGULANT THERAPY
     Dosage: 230 MG, UNK
     Route: 048
  5. ESIDREX [Suspect]
     Active Substance: HYDROCHLOROTHIAZIDE
     Indication: POISONING
     Dosage: 750 MG (30 TABLETS OF 25 MG)
     Route: 048
     Dates: start: 20151222, end: 20151222
  6. PARACETAMOL [Suspect]
     Active Substance: ACETAMINOPHEN
     Indication: POISONING
     Dosage: 4 G, SINGLE
     Route: 048
     Dates: start: 20151222, end: 20151222
  7. TAHOR [Suspect]
     Active Substance: ATORVASTATIN CALCIUM
     Indication: POISONING
     Dosage: 400 MG (20 TABLETS OF 20 MG)
     Route: 048
     Dates: start: 20151222, end: 20151222
  8. KALEROID [Suspect]
     Active Substance: POTASSIUM CHLORIDE
     Indication: POISONING
     Dosage: 20000 MG (20 TABLETS OF 1000 MG)
     Route: 048
     Dates: start: 20151222, end: 20151222
  9. AMLODIPINE BESILATE [Suspect]
     Active Substance: AMLODIPINE BESYLATE
     Indication: POISONING
     Dosage: 100 MG (10 TABLETS OF 10 MG)
     Route: 048
     Dates: start: 20151222, end: 20151222
  10. APIXABAN [Suspect]
     Active Substance: APIXABAN
     Indication: POISONING
     Dosage: 200 MG (40 TABLETS OF 5 MG)
     Route: 048
     Dates: start: 20151222, end: 20151222

REACTIONS (7)
  - Toxicity to various agents [Recovered/Resolved]
  - Poisoning deliberate [Unknown]
  - Cardiogenic shock [Recovered/Resolved]
  - Intentional overdose [Unknown]
  - Hypovolaemic shock [Recovered/Resolved]
  - Drug level increased [Recovered/Resolved]
  - Hypokalaemia [Recovered/Resolved]

NARRATIVE: CASE EVENT DATE: 20151222
